FAERS Safety Report 9779276 (Version 1)
Quarter: 2013Q4

REPORT INFORMATION
  Report Type: Spontaneous
  Country: US (occurrence: US)
  Receive Date: 20131223
  Receipt Date: 20131223
  Transmission Date: 20140711
  Serious: No
  Sender: FDA-Public Use
  Company Number: US-PFIZER INC-2013365200

PATIENT
  Age: 80 Year
  Sex: Female

DRUGS (1)
  1. LYRICA [Suspect]
     Indication: MYALGIA
     Dosage: UNK, SINGLE

REACTIONS (6)
  - Visual acuity reduced [Unknown]
  - Vision blurred [Unknown]
  - Swelling face [Unknown]
  - Dizziness [Unknown]
  - Oedema mouth [Unknown]
  - Malaise [Unknown]
